FAERS Safety Report 5805326-2 (Version None)
Quarter: 2008Q3

REPORT INFORMATION
  Report Type: 
  Country: None (occurrence: None)
  Receive Date: 20080709
  Receipt Date: 20080701
  Transmission Date: 20090109
  Serious: Yes (Other)
  Sender: FDA-Public Use
  Company Number: US-ELI_LILLY_AND_COMPANY-US200807000454

PATIENT
  Sex: Female

DRUGS (16)
  1. BYETTA [Suspect]
     Indication: TYPE 2 DIABETES MELLITUS
     Dosage: 10 UG, 2/D
     Route: 058
     Dates: start: 20070301
  2. BYETTA [Suspect]
     Dosage: 10 UG, 2/D
     Route: 058
     Dates: start: 20070301
  3. OXYCONTIN [Concomitant]
     Indication: RHEUMATOID ARTHRITIS
     Dosage: 40 MG, 2/D
     Route: 048
     Dates: start: 20070101
  4. OXYCONTIN [Concomitant]
     Dosage: 30 MG, UNK
     Route: 048
  5. CALTRATE /00108001/ [Concomitant]
     Dosage: UNK, 3/D
     Route: 048
  6. VYTORIN [Concomitant]
     Indication: BLOOD CHOLESTEROL
     Dosage: UNK, DAILY (1/D)
     Route: 048
  7. CYMBALTA [Concomitant]
     Indication: OSTEOARTHRITIS
     Dosage: 60 MG, 2/D
     Route: 048
  8. TOPAMAX [Concomitant]
     Indication: MIGRAINE
     Dosage: 100 MG, 3/D
     Route: 048
  9. REQUIP [Concomitant]
     Indication: RESTLESS LEGS SYNDROME
     Dosage: 1 MG, 2/D
     Route: 048
     Dates: start: 20080201
  10. QUININE [Concomitant]
  11. ZYRTEC [Concomitant]
     Indication: SINUS DISORDER
     Dosage: 10 MG, DAILY (1/D)
     Route: 048
  12. NEXIUM [Concomitant]
     Indication: GASTROOESOPHAGEAL REFLUX DISEASE
     Dosage: 40 MG, 2/D
     Route: 048
     Dates: start: 20020101
  13. AMERGE [Concomitant]
     Indication: MIGRAINE
     Dosage: 2.5 MG, AS NEEDED
  14. IMITREX [Concomitant]
     Indication: MIGRAINE
     Dosage: 6 MG, 4/W
     Route: 058
  15. OMEGA 3 [Concomitant]
     Indication: BLOOD CHOLESTEROL
     Dosage: 1200 MG, DAILY (1/D)
     Route: 048
     Dates: start: 20050101
  16. AMMONIUM LACTATE [Concomitant]
     Indication: DRY SKIN
     Dosage: 140 MG, 2/D
     Dates: start: 20010101

REACTIONS (12)
  - ABDOMINAL PAIN LOWER [None]
  - BLOOD GLUCOSE INCREASED [None]
  - COUGH [None]
  - DYSPEPSIA [None]
  - FALL [None]
  - HYPERHIDROSIS [None]
  - INFECTION [None]
  - LOSS OF CONSCIOUSNESS [None]
  - NAUSEA [None]
  - PARANASAL SINUS HYPERSECRETION [None]
  - SKIN LACERATION [None]
  - VOMITING [None]
